FAERS Safety Report 6240445-0 (Version None)
Quarter: 2009Q2

REPORT INFORMATION
  Report Type: 
  Country: None (occurrence: None)
  Receive Date: 20090619
  Receipt Date: 20080513
  Transmission Date: 20091009
  Serious: Yes (Hospitalization)
  Sender: FDA-Public Use
  Company Number: AE-508-160

PATIENT
  Age: 29 Year
  Sex: Female
  Weight: 70.7611 kg

DRUGS (7)
  1. LIDODERM [Suspect]
     Indication: BACK PAIN
     Dosage: 2 PATCHES A DAY
     Dates: start: 20080505
  2. PROZAC [Concomitant]
  3. INDERAL [Concomitant]
  4. METHADONE [Concomitant]
  5. FLUOXETINE HCL CAPSULE [Concomitant]
  6. NICOTINE [Concomitant]
  7. PRENATAL PLUS TABLET 27 [Concomitant]

REACTIONS (5)
  - DELIVERY [None]
  - DRUG EXPOSURE DURING PREGNANCY [None]
  - DRUG SCREEN POSITIVE [None]
  - ENDOMETRITIS DECIDUAL [None]
  - PNEUMONIA [None]
